FAERS Safety Report 16975662 (Version 1)
Quarter: 2019Q4

REPORT INFORMATION
  Report Type: Spontaneous
  Country: ES (occurrence: ES)
  Receive Date: 20191030
  Receipt Date: 20191030
  Transmission Date: 20200122
  Serious: Yes (Other)
  Sender: FDA-Public Use
  Company Number: ES-ELI_LILLY_AND_COMPANY-ES201910011323

PATIENT
  Age: 36 Year
  Sex: Female
  Weight: 73 kg

DRUGS (4)
  1. LORAZEPAM. [Concomitant]
     Active Substance: LORAZEPAM
     Indication: ANXIETY
     Dosage: 1 MG, TWICE OR THREE TIMES DAILY
     Route: 065
     Dates: start: 20160808
  2. CYMBALTA [Suspect]
     Active Substance: DULOXETINE HYDROCHLORIDE
     Indication: ANXIETY
     Dosage: 60 MG, DAILY
     Route: 065
     Dates: start: 20190926
  3. CYMBALTA [Suspect]
     Active Substance: DULOXETINE HYDROCHLORIDE
     Indication: ANXIETY
     Dosage: 60 MG, DAILY
     Route: 048
     Dates: start: 20190926
  4. PAROXETINA [PAROXETINE] [Concomitant]
     Indication: ANXIETY
     Dosage: 20 MG, DAILY
     Route: 065
     Dates: start: 20170516

REACTIONS (8)
  - Eye pain [Unknown]
  - Skin burning sensation [Unknown]
  - Formication [Unknown]
  - Headache [Unknown]
  - Nasal pruritus [Unknown]
  - Hypoaesthesia oral [Not Recovered/Not Resolved]
  - Myalgia [Unknown]
  - Agitation [Unknown]

NARRATIVE: CASE EVENT DATE: 20190926
